FAERS Safety Report 13640366 (Version 3)
Quarter: 2017Q4

REPORT INFORMATION
  Report Type: Spontaneous
  Country: CA (occurrence: CA)
  Receive Date: 20170610
  Receipt Date: 20171230
  Transmission Date: 20180320
  Serious: Yes (Other)
  Sender: FDA-Public Use
  Company Number: CA-CONCORDIA PHARMACEUTICALS INC.-GSH201706-003362

PATIENT
  Age: 54 Year
  Sex: Male

DRUGS (12)
  1. ACTEMRA [Concomitant]
     Active Substance: TOCILIZUMAB
  2. ENBREL [Suspect]
     Active Substance: ETANERCEPT
     Indication: RHEUMATOID ARTHRITIS
     Route: 065
  3. LEFLUNOMIDE. [Concomitant]
     Active Substance: LEFLUNOMIDE
     Dates: start: 2000, end: 2010
  4. METHOTREXATE SODIUM. [Suspect]
     Active Substance: METHOTREXATE SODIUM
     Indication: RHEUMATOID ARTHRITIS
     Route: 048
     Dates: start: 2000
  5. SODIUM AUROTHIOMALATE [Concomitant]
     Active Substance: GOLD SODIUM THIOMALATE
  6. XELJANZ [Concomitant]
     Active Substance: TOFACITINIB CITRATE
     Dates: start: 20160226
  7. HYDROXYCHLOROQUINE [Concomitant]
     Active Substance: HYDROXYCHLOROQUINE
     Dates: start: 199710, end: 199902
  8. SULFASALAZINE. [Suspect]
     Active Substance: SULFASALAZINE
     Indication: RHEUMATOID ARTHRITIS
     Route: 065
  9. ARAVA [Concomitant]
     Active Substance: LEFLUNOMIDE
  10. REMICADE [Concomitant]
     Active Substance: INFLIXIMAB
     Dates: start: 199709, end: 199902
  11. PLAQUENIL [Suspect]
     Active Substance: HYDROXYCHLOROQUINE SULFATE
     Indication: RHEUMATOID ARTHRITIS
     Route: 048
  12. RITUXAN [Suspect]
     Active Substance: RITUXIMAB
     Indication: RHEUMATOID ARTHRITIS
     Route: 042
     Dates: end: 201510

REACTIONS (6)
  - Pulmonary oedema [Unknown]
  - Drug intolerance [Unknown]
  - Hip arthroplasty [Unknown]
  - Drug effect decreased [Unknown]
  - Condition aggravated [Unknown]
  - Drug effect incomplete [Unknown]
